FAERS Safety Report 12711414 (Version 3)
Quarter: 2016Q4

REPORT INFORMATION
  Report Type: Spontaneous
  Country: US (occurrence: US)
  Receive Date: 20160902
  Receipt Date: 20161007
  Transmission Date: 20170207
  Serious: No
  Sender: FDA-Public Use
  Company Number: US-ACTELION-A-NJ2016-140905

PATIENT
  Age: 48 Year
  Sex: Female
  Weight: 91.61 kg

DRUGS (4)
  1. UPTRAVI [Suspect]
     Active Substance: SELEXIPAG
     Indication: PULMONARY HYPERTENSION
     Dosage: 400 MCG, BID
     Route: 048
     Dates: start: 20160807
  2. UPTRAVI [Suspect]
     Active Substance: SELEXIPAG
     Dosage: 1600 UNK, UNK
     Route: 048
  3. SILDENAFIL. [Concomitant]
     Active Substance: SILDENAFIL
  4. UPTRAVI [Suspect]
     Active Substance: SELEXIPAG
     Dosage: 200 MCG, BID
     Route: 048
     Dates: start: 20160719

REACTIONS (5)
  - Nausea [Unknown]
  - Headache [Unknown]
  - Rash [Unknown]
  - Pruritus [Unknown]
  - Eyelid oedema [Unknown]
